FAERS Safety Report 6659528-6 (Version None)
Quarter: 2010Q1

REPORT INFORMATION
  Report Type: 
  Country: None (occurrence: None)
  Receive Date: 20100330
  Receipt Date: 20100316
  Transmission Date: 20100710
  Serious: Yes (Other)
  Sender: FDA-Public Use
  Company Number: GB-MYLANLABS-2010S1004502

PATIENT
  Age: 40 Year
  Sex: Male

DRUGS (2)
  1. FINASTERIDE [Suspect]
     Indication: ALOPECIA
  2. AVODART [Suspect]
     Indication: ALOPECIA
     Dates: start: 20080101

REACTIONS (3)
  - DARK CIRCLES UNDER EYES [None]
  - DYSGEUSIA [None]
  - SKIN ATROPHY [None]
